FAERS Safety Report 9284425 (Version 3)
Quarter: 2013Q2

REPORT INFORMATION
  Report Type: Spontaneous
  Country: PT (occurrence: PT)
  Receive Date: 20130510
  Receipt Date: 20130520
  Transmission Date: 20140414
  Serious: Yes (Other)
  Sender: FDA-Public Use
  Company Number: PT-ABBOTT-13P-130-1086057-00

PATIENT
  Age: 51 Year
  Sex: Male

DRUGS (6)
  1. HUMIRA [Suspect]
     Indication: PSORIATIC ARTHROPATHY
     Dates: start: 201106
  2. METHOTREXATE [Concomitant]
     Indication: PSORIATIC ARTHROPATHY
  3. SULFASALAZINE [Concomitant]
     Indication: PSORIATIC ARTHROPATHY
  4. PREDNISOLONE [Concomitant]
     Indication: PSORIATIC ARTHROPATHY
  5. NSAID^S [Concomitant]
     Indication: PSORIATIC ARTHROPATHY
  6. UNKNOWN MEDICATION [Concomitant]
     Indication: LATENT TUBERCULOSIS
     Dates: start: 201105

REACTIONS (5)
  - Visceral leishmaniasis [Unknown]
  - Asthenia [Unknown]
  - Mucosal discolouration [Unknown]
  - Rales [Unknown]
  - Inflammatory marker increased [Not Recovered/Not Resolved]
